FAERS Safety Report 4404296-1 (Version None)
Quarter: 2004Q3

REPORT INFORMATION
  Report Type: 
  Country: None (occurrence: None)
  Receive Date: 20040720
  Receipt Date: 20040708
  Transmission Date: 20050211
  Serious: No
  Sender: FDA-Public Use
  Company Number: 2004UW09772

PATIENT
  Age: 44 Year
  Sex: Female
  Weight: 52.6173 kg

DRUGS (5)
  1. SEROQUEL [Suspect]
     Indication: SCHIZOAFFECTIVE DISORDER
     Dosage: 600 MG DAILY PO
     Route: 048
     Dates: start: 20030123, end: 20040114
  2. SEROQUEL [Suspect]
     Indication: SCHIZOAFFECTIVE DISORDER
     Dosage: 50 MG BID PO
     Route: 048
     Dates: start: 20040511, end: 20040511
  3. ZOLOFT [Concomitant]
  4. DEPAKOTE [Concomitant]
  5. REMERON [Concomitant]

REACTIONS (2)
  - MOVEMENT DISORDER [None]
  - SCREAMING [None]
